FAERS Safety Report 4308238-9 (Version None)
Quarter: 2004Q1

REPORT INFORMATION
  Report Type: 
  Country: None (occurrence: None)
  Receive Date: 20040301
  Receipt Date: 20030909
  Transmission Date: 20041129
  Serious: No
  Sender: FDA-Public Use
  Company Number: US-BRISTOL-MYERS SQUIBB COMPANY-12386892

PATIENT
  Age: 46 Year
  Sex: Male
  Weight: 154 kg

DRUGS (1)
  1. GLUCOPHAGE [Suspect]
     Indication: DIABETES MELLITUS
     Route: 048

REACTIONS (2)
  - ABDOMINAL DISTENSION [None]
  - DIARRHOEA [None]
